FAERS Safety Report 4346656-3 (Version None)
Quarter: 2004Q1

REPORT INFORMATION
  Report Type: 
  Country: None (occurrence: None)
  Receive Date: 20040325
  Receipt Date: 20040206
  Transmission Date: 20041129
  Serious: No
  Sender: FDA-Public Use
  Company Number: USA030639207

PATIENT
  Age: 50 Year
  Sex: Female
  Weight: 72 kg

DRUGS (14)
  1. FORTEO [Suspect]
     Indication: OSTEOPOROSIS
     Dates: start: 20030610
  2. PROZAC [Concomitant]
  3. PERCODAN [Concomitant]
  4. EFFEXOR [Concomitant]
  5. CELEBREX [Concomitant]
  6. ZANTAC (RANITIDINE HYDRCHLORIDE) [Concomitant]
  7. CARAFATE [Concomitant]
  8. COLACE (DOCUSATE SODIUM) [Concomitant]
  9. SIMETHICONE [Concomitant]
  10. SERAX [Concomitant]
  11. PREMARIN [Concomitant]
  12. CENTRUM [Concomitant]
  13. CHLORPHENIRAMINE MALEATE AND PSEUDOEPHEDRINE HCL [Concomitant]
  14. TYLENOL [Concomitant]

REACTIONS (9)
  - ALOPECIA [None]
  - BURNING SENSATION [None]
  - DIZZINESS [None]
  - HEADACHE [None]
  - PAIN [None]
  - PHOTOSENSITIVITY REACTION [None]
  - PRURITUS [None]
  - WOUND [None]
  - WOUND INFECTION [None]
